FAERS Safety Report 6062747-3 (Version None)
Quarter: 2009Q1

REPORT INFORMATION
  Report Type: 
  Country: None (occurrence: None)
  Receive Date: 20090202
  Receipt Date: 20090202
  Transmission Date: 20090719
  Serious: Yes (Life-Threatening, Other)
  Sender: FDA-Public Use
  Company Number: None

PATIENT
  Sex: Female
  Weight: 113.3993 kg

DRUGS (2)
  1. GABAPENTIN [Suspect]
     Indication: DIABETIC NEUROPATHY
     Dates: start: 20081208, end: 20081220
  2. METHIMAZOLE [Suspect]
     Indication: HYPERTHYROIDISM
     Dates: start: 20080910, end: 20081220

REACTIONS (1)
  - MAJOR DEPRESSION [None]
